FAERS Safety Report 6253080-5 (Version None)
Quarter: 2009Q3

REPORT INFORMATION
  Report Type: 
  Country: None (occurrence: None)
  Receive Date: 20090701
  Receipt Date: 20090622
  Transmission Date: 20100115
  Serious: Yes (Other)
  Sender: FDA-Public Use
  Company Number: PHHY2009BE24797

PATIENT

DRUGS (3)
  1. ZOMETA [Suspect]
     Indication: PROSTATE CANCER
     Dosage: UNK
     Dates: start: 20071001
  2. ZOMETA [Suspect]
     Dosage: 4 MG EVERY 6 WEEKS
  3. SUTENT [Concomitant]

REACTIONS (1)
  - OSTEONECROSIS [None]
